FAERS Safety Report 12564050 (Version 2)
Quarter: 2016Q3

REPORT INFORMATION
  Report Type: Spontaneous
  Country: US (occurrence: US)
  Receive Date: 20160718
  Receipt Date: 20160928
  Transmission Date: 20161109
  Serious: No
  Sender: FDA-Public Use
  Company Number: US-TEVA-672964USA

PATIENT
  Age: 36 Year
  Sex: Female

DRUGS (14)
  1. BACLOFEN. [Concomitant]
     Active Substance: BACLOFEN
     Dates: start: 20111004
  2. FLUTICASONE SPR [Concomitant]
     Dates: start: 20160325, end: 20160629
  3. BACLOFEN. [Concomitant]
     Active Substance: BACLOFEN
     Dates: start: 20160114, end: 20160708
  4. OMEPRAZOLE. [Concomitant]
     Active Substance: OMEPRAZOLE
     Dates: start: 20160427, end: 20160626
  5. GABAPENTIN. [Concomitant]
     Active Substance: GABAPENTIN
     Dates: start: 20111004
  6. OXYBUTYNIN [Concomitant]
     Active Substance: OXYBUTYNIN
     Dates: start: 20160427, end: 20160626
  7. AMITRIPTYLINE [Concomitant]
     Active Substance: AMITRIPTYLINE
     Dates: start: 20111004
  8. PEPCID [Concomitant]
     Active Substance: FAMOTIDINE
     Dates: start: 20111004
  9. PEPCID [Concomitant]
     Active Substance: FAMOTIDINE
     Dates: start: 19000101
  10. TRAMADOL HCL [Concomitant]
     Active Substance: TRAMADOL HYDROCHLORIDE
     Dates: start: 20160615, end: 20160814
  11. LORATADINE. [Concomitant]
     Active Substance: LORATADINE
     Dates: start: 20160325, end: 20160524
  12. COPAXONE [Suspect]
     Active Substance: GLATIRAMER ACETATE
     Route: 058
     Dates: start: 201505
  13. GABAPENTIN. [Concomitant]
     Active Substance: GABAPENTIN
     Dates: start: 20160114, end: 20160708
  14. NAPROXEN. [Concomitant]
     Active Substance: NAPROXEN
     Dates: start: 20160504, end: 20160703

REACTIONS (5)
  - Cartilage injury [Unknown]
  - Injection site reaction [Unknown]
  - Fall [Unknown]
  - Joint injury [Unknown]
  - Ataxia [Unknown]

NARRATIVE: CASE EVENT DATE: 201605
